FAERS Safety Report 21667676 (Version 2)
Quarter: 2023Q1

REPORT INFORMATION
  Report Type: Report from Study
  Country: US (occurrence: US)
  Receive Date: 20221201
  Receipt Date: 20230116
  Transmission Date: 20230417
  Serious: No
  Sender: FDA-Public Use
  Company Number: US-BRISTOL-MYERS SQUIBB COMPANY-2022-146374

PATIENT
  Age: 74 Year
  Sex: Female
  Weight: 101 kg

DRUGS (1)
  1. SOTYKTU [Suspect]
     Active Substance: DEUCRAVACITINIB
     Indication: Psoriasis
     Dosage: DOSE: 1 TABLET; FREQ: DAILY
     Route: 048
     Dates: start: 20221115

REACTIONS (16)
  - Stomatitis [Unknown]
  - Headache [Unknown]
  - Nausea [Unknown]
  - Decreased appetite [Unknown]
  - Chest discomfort [Unknown]
  - Cough [Unknown]
  - Sneezing [Unknown]
  - Dysphonia [Unknown]
  - Oral mucosal blistering [Unknown]
  - Pain [Unknown]
  - Back pain [Unknown]
  - Arthralgia [Unknown]
  - Illness [Unknown]
  - Rhinorrhoea [Unknown]
  - Somnolence [Unknown]
  - Psoriasis [Unknown]

NARRATIVE: CASE EVENT DATE: 20221115
